FAERS Safety Report 20540724 (Version 1)
Quarter: 2022Q1

REPORT INFORMATION
  Report Type: Spontaneous
  Country: CN (occurrence: CN)
  Receive Date: 20220302
  Receipt Date: 20220302
  Transmission Date: 20220423
  Serious: Yes (Hospitalization, Other)
  Sender: FDA-Public Use
  Company Number: CN-BAYER-2021A217622

PATIENT
  Age: 74 Year
  Sex: Female
  Weight: 63.3 kg

DRUGS (5)
  1. XARELTO [Suspect]
     Active Substance: RIVAROXABAN
     Indication: Thrombosis prophylaxis
     Dosage: 15 MG, QD
     Route: 048
     Dates: start: 20210519, end: 20210906
  2. INSULIN DETEMIR [Concomitant]
     Active Substance: INSULIN DETEMIR
     Dosage: 16 U, QD
     Route: 058
     Dates: start: 20210519, end: 20210906
  3. REPAGLINIDE [Concomitant]
     Active Substance: REPAGLINIDE
     Dosage: 2 MG, TID
     Route: 048
     Dates: start: 20210519, end: 20210906
  4. DAPAGLIFLOZIN [Concomitant]
     Active Substance: DAPAGLIFLOZIN
     Dosage: 10 MG, QD
     Route: 048
     Dates: start: 20210519, end: 20210906
  5. ACARBOSE [Concomitant]
     Active Substance: ACARBOSE
     Dosage: 0.1 G, TID
     Route: 048
     Dates: start: 20210519, end: 20210906

REACTIONS (9)
  - Cystitis haemorrhagic [Recovering/Resolving]
  - Haematuria [Recovering/Resolving]
  - Mitral valve incompetence [Unknown]
  - Nephritis [Unknown]
  - Hepatic cyst [Unknown]
  - Ventricular hypertrophy [Unknown]
  - Left ventricular dysfunction [Unknown]
  - Product prescribing issue [Unknown]
  - Incorrect dose administered [Unknown]

NARRATIVE: CASE EVENT DATE: 20210519
